FAERS Safety Report 6070641-7 (Version None)
Quarter: 2009Q1

REPORT INFORMATION
  Report Type: 
  Country: None (occurrence: None)
  Receive Date: 20090209
  Receipt Date: 20090128
  Transmission Date: 20090719
  Serious: Yes (Other)
  Sender: FDA-Public Use
  Company Number: ES-PFIZER INC-2008018199

PATIENT

DRUGS (1)
  1. PROGEVERA [Suspect]
     Indication: POLYCYSTIC OVARIES
     Dosage: 60 MG, 1X/DAY
     Route: 048
     Dates: start: 20070420, end: 20070427

REACTIONS (1)
  - HEPATITIS ACUTE [None]
